FAERS Safety Report 7830518-0 (Version None)
Quarter: 2011Q4

REPORT INFORMATION
  Report Type: 
  Country: None (occurrence: None)
  Receive Date: 20111021
  Receipt Date: 20111010
  Transmission Date: 20120403
  Serious: Yes (Other)
  Sender: FDA-Public Use
  Company Number: FR-AMGEN-FRASP2011053171

PATIENT
  Age: 56 Year
  Sex: Male
  Weight: 70 kg

DRUGS (5)
  1. METHOTREXATE [Suspect]
     Indication: PSORIATIC ARTHROPATHY
     Dosage: 7.5 MG, WEEKLY
     Route: 048
     Dates: start: 20020101, end: 20091201
  2. VOLTARENE                          /00372302/ [Concomitant]
     Dosage: 275 MG, 1X/DAY
     Route: 048
     Dates: start: 20020101
  3. ZOLTUM                             /00661201/ [Concomitant]
     Dosage: UNK
     Route: 048
     Dates: start: 20020101
  4. ENBREL [Suspect]
     Indication: PSORIASIS
  5. ENBREL [Suspect]
     Indication: PSORIATIC ARTHROPATHY
     Dosage: 50 MG, 1X/WK
     Route: 058
     Dates: start: 20071101, end: 20091201

REACTIONS (4)
  - MALIGNANT MELANOMA [None]
  - PAIN [None]
  - SYNOVITIS [None]
  - MUSCULOSKELETAL STIFFNESS [None]
